FAERS Safety Report 10224759 (Version 2)
Quarter: 2014Q2

REPORT INFORMATION
  Report Type: Report from Study
  Country: CA (occurrence: CA)
  Receive Date: 20140609
  Receipt Date: 20140609
  Transmission Date: 20141212
  Serious: Yes (Other)
  Sender: FDA-Public Use
  Company Number: CA-ALEXION PHARMACEUTICALS INC.-A201301962

PATIENT
  Sex: 0

DRUGS (18)
  1. SOLIRIS [Suspect]
     Indication: HAEMOLYTIC URAEMIC SYNDROME
     Dosage: 900 MG, QW
     Route: 042
     Dates: start: 20120828, end: 20120925
  2. SOLIRIS [Suspect]
     Dosage: 1200 MG, Q2W
     Route: 042
     Dates: start: 20121009
  3. SOLIRIS [Suspect]
     Dosage: 1200 MG, Q2W
     Route: 042
     Dates: start: 20121009
  4. ALCOHOL [Suspect]
     Indication: PRODUCT USED FOR UNKNOWN INDICATION
     Dosage: UNK
     Route: 048
     Dates: start: 20130814
  5. EPIVAL [Concomitant]
     Indication: PRODUCT USED FOR UNKNOWN INDICATION
     Dosage: 250 MG, QD IN AM
     Route: 048
  6. EPIVAL [Concomitant]
     Dosage: 500 MG, QD IN PM
     Route: 048
  7. FRISIUM [Concomitant]
     Indication: PRODUCT USED FOR UNKNOWN INDICATION
     Dosage: 15 MG, QD IN AM
     Route: 048
  8. FRISIUM [Concomitant]
     Dosage: 10 MG, QD IN PM
     Route: 048
  9. AMLODIPINE [Concomitant]
     Indication: PRODUCT USED FOR UNKNOWN INDICATION
     Dosage: 10 MG, QD
     Route: 048
     Dates: end: 20130925
  10. EPREX [Concomitant]
     Indication: PRODUCT USED FOR UNKNOWN INDICATION
     Dosage: 10000 UNITS, QW
     Route: 058
     Dates: end: 20130925
  11. LEVAQUIN [Concomitant]
     Indication: PRODUCT USED FOR UNKNOWN INDICATION
     Dosage: 250 MG, QOD
     Route: 048
     Dates: end: 20130925
  12. PANTOLOC [Concomitant]
     Indication: PRODUCT USED FOR UNKNOWN INDICATION
     Dosage: 40 MG, QD
     Route: 048
     Dates: end: 20130925
  13. TYLENOL [Concomitant]
     Indication: PRODUCT USED FOR UNKNOWN INDICATION
     Dosage: 500 MG, PRN
     Route: 065
  14. ADVIL [Concomitant]
     Indication: PRODUCT USED FOR UNKNOWN INDICATION
     Dosage: UNK, PRN
     Route: 065
  15. IRBESARTAN [Concomitant]
     Indication: HYPERTENSION
     Dosage: 150 MG, QD IN PM
     Route: 048
  16. SEVELAMER [Concomitant]
     Indication: PRODUCT USED FOR UNKNOWN INDICATION
     Dosage: 800 MG, TID
     Route: 048
     Dates: end: 20130925
  17. CLAVULIN                           /00756801/ [Concomitant]
     Indication: PRODUCT USED FOR UNKNOWN INDICATION
     Dosage: 875 MG, BID
     Route: 065
     Dates: start: 20130510, end: 20130517
  18. NOVOCLOXIN [Concomitant]
     Indication: ERYTHEMA
     Dosage: 250 MG, QID
     Route: 065
     Dates: start: 20130605, end: 20130615

REACTIONS (6)
  - Convulsion [Unknown]
  - Hangover [Recovering/Resolving]
  - Abdominal discomfort [Recovering/Resolving]
  - Contusion [Not Recovered/Not Resolved]
  - Headache [Recovering/Resolving]
  - Fatigue [Not Recovered/Not Resolved]
